FAERS Safety Report 14896312 (Version 3)
Quarter: 2018Q2

REPORT INFORMATION
  Report Type: Report from Study
  Country: US (occurrence: US)
  Receive Date: 20180515
  Receipt Date: 20180531
  Transmission Date: 20180711
  Serious: Yes (Other)
  Sender: FDA-Public Use
  Company Number: US-AMGEN-USASL2018062417

PATIENT
  Age: 68 Year
  Sex: Female

DRUGS (3)
  1. REPATHA [Suspect]
     Active Substance: EVOLOCUMAB
     Indication: PRODUCT USED FOR UNKNOWN INDICATION
     Dosage: 420 MG, UNK
     Route: 065
     Dates: start: 20180316
  2. OMEGA 3 [Concomitant]
     Active Substance: OMEGA-3 FATTY ACIDS
     Dosage: 4000 IU, QD
  3. NIACIN. [Concomitant]
     Active Substance: NIACIN

REACTIONS (34)
  - Chromaturia [Unknown]
  - Paraesthesia [Unknown]
  - Pain in jaw [Unknown]
  - Vision blurred [Unknown]
  - Palpitations [Recovered/Resolved]
  - Confusional state [Unknown]
  - Urinary tract infection [Unknown]
  - Myalgia [Recovering/Resolving]
  - Somnolence [Unknown]
  - Skin atrophy [Unknown]
  - Feeling abnormal [Unknown]
  - Cardiac flutter [Not Recovered/Not Resolved]
  - Gastrointestinal pain [Unknown]
  - Fatigue [Unknown]
  - Increased appetite [Unknown]
  - Chest discomfort [Unknown]
  - Asthenia [Unknown]
  - Eye pain [Unknown]
  - Dyspnoea [Unknown]
  - Muscular weakness [Unknown]
  - Headache [Not Recovered/Not Resolved]
  - Anorectal disorder [Unknown]
  - Toothache [Unknown]
  - Mobility decreased [Unknown]
  - Oropharyngeal pain [Unknown]
  - Visual impairment [Unknown]
  - Weight increased [Unknown]
  - Pruritus [Unknown]
  - Nausea [Recovering/Resolving]
  - Nightmare [Unknown]
  - Tinnitus [Not Recovered/Not Resolved]
  - Sinusitis [Unknown]
  - Hypoaesthesia [Unknown]
  - Skin swelling [Unknown]

NARRATIVE: CASE EVENT DATE: 2018
